FAERS Safety Report 5595236-0 (Version None)
Quarter: 2008Q1

REPORT INFORMATION
  Report Type: 
  Country: None (occurrence: None)
  Receive Date: 20080117
  Receipt Date: 20080105
  Transmission Date: 20080703
  Serious: Yes (Hospitalization, Other)
  Sender: FDA-Public Use
  Company Number: US-PFIZER INC-2008000293

PATIENT
  Sex: Male
  Weight: 122.5 kg

DRUGS (5)
  1. DILANTIN [Suspect]
     Indication: PETIT MAL EPILEPSY
     Route: 048
  2. PHENYTOIN [Suspect]
     Dates: end: 20070901
  3. LISINOPRIL [Concomitant]
  4. SIMVASTATIN [Concomitant]
  5. HYDROCHLOROTHIAZIDE [Concomitant]

REACTIONS (9)
  - AURA [None]
  - DIZZINESS [None]
  - DRUG HYPERSENSITIVITY [None]
  - FLUSHING [None]
  - HEADACHE [None]
  - INSOMNIA [None]
  - PARAESTHESIA [None]
  - PRURITUS [None]
  - SARCOMA [None]
